FAERS Safety Report 15424150 (Version 1)
Quarter: 2018Q3

REPORT INFORMATION
  Report Type: Spontaneous
  Country: US (occurrence: US)
  Receive Date: 20180921
  Receipt Date: 20180921
  Transmission Date: 20181010
  Serious: Yes (Disabling)
  Sender: FDA-Public Use
  Company Number: None

PATIENT
  Age: 54 Year
  Sex: Male
  Weight: 99 kg

DRUGS (3)
  1. CLONAZEPAM 0.5 MG TABLET [Suspect]
     Active Substance: CLONAZEPAM
     Indication: RESTLESS LEGS SYNDROME
     Dosage: ?          QUANTITY:1 TABLET(S);?
     Route: 048
  2. CLONAZEPAM. [Concomitant]
     Active Substance: CLONAZEPAM
  3. DAILY MULTI VITAMIN [Concomitant]

REACTIONS (3)
  - Product substitution issue [None]
  - Drug effect decreased [None]
  - Insomnia [None]

NARRATIVE: CASE EVENT DATE: 20180914
